FAERS Safety Report 13063939 (Version 6)
Quarter: 2017Q3

REPORT INFORMATION
  Report Type: Spontaneous
  Country: US (occurrence: US)
  Receive Date: 20161227
  Receipt Date: 20170728
  Transmission Date: 20171127
  Serious: No
  Sender: FDA-Public Use
  Company Number: US-PFIZER INC-2016596921

PATIENT
  Age: 72 Year
  Sex: Female
  Weight: 68.27 kg

DRUGS (10)
  1. LETROZOLE. [Concomitant]
     Active Substance: LETROZOLE
     Indication: HORMONE THERAPY
     Dosage: 2.5 MG, 1X/DAY
     Dates: start: 201608
  2. SERTRALINE [Concomitant]
     Active Substance: SERTRALINE HYDROCHLORIDE
     Dosage: 25 MG, DAILY
  3. LEVOTHYROXINE. [Concomitant]
     Active Substance: LEVOTHYROXINE
     Indication: THYROID DISORDER
     Dosage: 0.05 MG, UNK
  4. BUPROPION. [Concomitant]
     Active Substance: BUPROPION
     Indication: RELAXATION THERAPY
     Dosage: 100 MG, 2X/DAY
  5. ATORVASTATIN [Concomitant]
     Active Substance: ATORVASTATIN
     Indication: BLOOD CHOLESTEROL ABNORMAL
     Dosage: 20 MG, 1X/DAY
     Dates: start: 2000
  6. MAG TAB SR [Concomitant]
     Indication: SUPPLEMENTATION THERAPY
     Dosage: 3 DF, 2X/DAY
     Dates: start: 2016
  7. LOSARTAN. [Concomitant]
     Active Substance: LOSARTAN
     Indication: BLOOD PRESSURE ABNORMAL
     Dosage: 100 MG, 1X/DAY
  8. ESOMEPRAZOLE MAGNESIUM. [Concomitant]
     Active Substance: ESOMEPRAZOLE MAGNESIUM
     Indication: GASTROOESOPHAGEAL REFLUX DISEASE
     Dosage: 40 MG, DAILY
  9. IBRANCE [Suspect]
     Active Substance: PALBOCICLIB
     Indication: BREAST CANCER METASTATIC
     Dosage: 125 MG, CYCLIC (ONCE A DAY FOR 21 DAYS ON AND 7 DAYS OFF)
     Route: 048
     Dates: start: 201608, end: 20161212
  10. IBRANCE [Suspect]
     Active Substance: PALBOCICLIB
     Dosage: 100 MG, CYCLIC (21 DAYS ON AND 7 DAYS OFF)
     Route: 048
     Dates: start: 20170426

REACTIONS (9)
  - Neoplasm progression [Unknown]
  - Anaemia [Unknown]
  - Fatigue [Recovering/Resolving]
  - Mouth ulceration [Not Recovered/Not Resolved]
  - Red blood cell count decreased [Unknown]
  - Blood magnesium decreased [Unknown]
  - White blood cell count decreased [Recovering/Resolving]
  - Neutrophil count decreased [Recovering/Resolving]
  - Eating disorder [Recovered/Resolved]

NARRATIVE: CASE EVENT DATE: 2016
